FAERS Safety Report 23041230 (Version 5)
Quarter: 2024Q4

REPORT INFORMATION
  Report Type: Report from Study
  Country: US (occurrence: US)
  Receive Date: 20231007
  Receipt Date: 20241230
  Transmission Date: 20250114
  Serious: Yes (Other)
  Sender: NOVARTIS
  Company Number: US-002147023-NVSC2023US214253

PATIENT
  Sex: Female

DRUGS (1)
  1. KESIMPTA [Suspect]
     Active Substance: OFATUMUMAB
     Indication: Multiple sclerosis
     Dosage: 20 MG, QMO
     Route: 058

REACTIONS (10)
  - Monocular vision [Unknown]
  - Device malfunction [Unknown]
  - Swelling [Unknown]
  - Neck pain [Unknown]
  - Muscle strain [Unknown]
  - Bronchitis [Unknown]
  - Productive cough [Unknown]
  - Sputum discoloured [Unknown]
  - Accidental exposure to product [Unknown]
  - Inappropriate schedule of product administration [Unknown]
